FAERS Safety Report 4630371-2 (Version None)
Quarter: 2005Q2

REPORT INFORMATION
  Report Type: 
  Country: None (occurrence: None)
  Receive Date: 20050408
  Receipt Date: 20040322
  Transmission Date: 20051028
  Serious: Yes (Other)
  Sender: FDA-Public Use
  Company Number: PHEH2004US03404

PATIENT
  Age: 65 Year
  Sex: Male

DRUGS (9)
  1. ZOMETA [Suspect]
     Indication: PROPHYLAXIS
     Dosage: 4 MG EVERY MONTH
     Route: 042
     Dates: start: 20030201
  2. FOSAMAX [Concomitant]
     Indication: OSTEOPENIA
     Dosage: 70 MG ONE TIME PER WEEK
     Dates: start: 20011115, end: 20021201
  3. TAMOXIFEN CITRATE [Concomitant]
     Indication: GYNAECOMASTIA
     Dosage: 10 MG, BID
  4. TRAZODONE HCL [Concomitant]
     Dosage: 100 MG, QD
     Route: 048
     Dates: start: 20040130
  5. NIZORAL [Concomitant]
  6. AVODART [Concomitant]
     Dosage: .5 MG, QD
     Route: 048
  7. LUPRON [Concomitant]
     Dosage: 22.5 MG QUARTERLY
     Route: 030
     Dates: start: 20020507
  8. HYDROCORTISONE [Concomitant]
     Indication: PROPHYLAXIS
     Dosage: 20 MG, BID
     Route: 048
     Dates: start: 20030729
  9. CELEBREX [Concomitant]
     Dosage: 200 MG, BID
     Route: 048
     Dates: start: 20040130

REACTIONS (17)
  - AMNESIA [None]
  - ANAEMIA OF CHRONIC DISEASE [None]
  - BONE DEBRIDEMENT [None]
  - ERECTILE DYSFUNCTION [None]
  - HOT FLUSH [None]
  - HYPERCHOLESTEROLAEMIA [None]
  - IMPAIRED HEALING [None]
  - LIBIDO DECREASED [None]
  - OSTEOMYELITIS [None]
  - OSTEONECROSIS [None]
  - OSTEOPENIA [None]
  - PAIN [None]
  - PERINEAL PAIN [None]
  - POST PROCEDURAL COMPLICATION [None]
  - POST PROCEDURAL PAIN [None]
  - TOOTH EXTRACTION [None]
  - TOOTH INFECTION [None]
